FAERS Safety Report 4665517-3 (Version None)
Quarter: 2005Q2

REPORT INFORMATION
  Report Type: 
  Country: None (occurrence: None)
  Receive Date: 20050517
  Receipt Date: 20050504
  Transmission Date: 20051028
  Serious: Yes (Hospitalization, Disabling, Other)
  Sender: FDA-Public Use
  Company Number: 2004058034

PATIENT
  Age: 50 Year
  Sex: Male
  Weight: 79.95 kg

DRUGS (12)
  1. NEURONTIN [Suspect]
     Indication: BIPOLAR DISORDER
     Dosage: 1800 MG
     Dates: start: 20001001
  2. IBUPROFEN [Suspect]
     Indication: PAIN
     Dosage: 2400 MG (600 MG, 4 IN 1 D), ORAL
     Route: 048
  3. OLANZAPINE (OLANZAPINE) [Concomitant]
  4. TEMAZEPAM [Concomitant]
  5. CLONAZEPAM [Concomitant]
  6. BUPROPION (BUPROPION) [Concomitant]
  7. VALPROATE SODIUM [Concomitant]
  8. VENLAFAXINE HCL [Concomitant]
  9. SERTRALINE HCL [Concomitant]
  10. NEFAZODONE HCL [Concomitant]
  11. ZOLPIDEM TARTRATE [Concomitant]
  12. TIAGABINE HYDROCHLORIDE (TIAGABINE HYDROCHLORIDE) [Concomitant]

REACTIONS (27)
  - ANGER [None]
  - ANXIETY [None]
  - CHEST PAIN [None]
  - DELUSION [None]
  - DRUG INEFFECTIVE [None]
  - DRUG SCREEN POSITIVE [None]
  - EMOTIONAL DISORDER [None]
  - GRANDIOSITY [None]
  - HALLUCINATION, AUDITORY [None]
  - HYPERHIDROSIS [None]
  - HYPOMANIA [None]
  - LIMB INJURY [None]
  - MEMORY IMPAIRMENT [None]
  - NEPHRITIS INTERSTITIAL [None]
  - OFF LABEL USE [None]
  - OVERDOSE [None]
  - PAIN [None]
  - PRESSURE OF SPEECH [None]
  - PSYCHOMOTOR HYPERACTIVITY [None]
  - RENAL PAIN [None]
  - RESTLESSNESS [None]
  - SOMNOLENCE [None]
  - STRESS [None]
  - SUICIDE ATTEMPT [None]
  - TINEA VERSICOLOUR [None]
  - TOOTHACHE [None]
  - URETHRITIS [None]
